FAERS Safety Report 8117904-9 (Version None)
Quarter: 2012Q1

REPORT INFORMATION
  Report Type: 
  Country: None (occurrence: None)
  Receive Date: 20120131
  Receipt Date: 20120117
  Transmission Date: 20120608
  Serious: Yes (Other)
  Sender: FDA-Public Use
  Company Number: 1000027439

PATIENT
  Age: 56 Year
  Sex: Male
  Weight: 95 kg

DRUGS (11)
  1. ALBUTEROL [Concomitant]
  2. ASS (ACETYLSALICYLIC ACID)(ACETYLSALICYLIC ACID) [Concomitant]
  3. RAMIPRIL [Concomitant]
  4. ONBREZ (INDACATEROL MALEATE)(INDACATEROL MALEATE) [Concomitant]
  5. TRANSTEC (BUPRENORPHINE) (BUPRENORPHINE) [Concomitant]
  6. ROFLUMILAST (ROFLUMILAST) (TABLETS) [Suspect]
     Indication: CHRONIC OBSTRUCTIVE PULMONARY DISEASE
     Dosage: 500 MCG (500 MCG, 1 IN 1 D),ORAL, (500 MCG),ORAL
     Route: 048
     Dates: start: 20110101
  7. ROFLUMILAST (ROFLUMILAST) (TABLETS) [Suspect]
     Indication: CHRONIC OBSTRUCTIVE PULMONARY DISEASE
     Dosage: 500 MCG (500 MCG, 1 IN 1 D),ORAL, (500 MCG),ORAL
     Route: 048
     Dates: start: 20110404, end: 20110101
  8. ACC LONG (ACETYLCYSTEINE)(ACETYLCYSTEINE) [Concomitant]
  9. PREDNISOLONE [Concomitant]
  10. SIMVASTATIN [Concomitant]
  11. AMINEURIN (AMITRIPTYLINE HYDROCHLORIDE)(AMITRIPTYLINE HYDROCHLORIDE) [Concomitant]

REACTIONS (2)
  - BREAST PAIN [None]
  - BREAST SWELLING [None]
